FAERS Safety Report 7747422-9 (Version None)
Quarter: 2011Q3

REPORT INFORMATION
  Report Type: 
  Country: None (occurrence: None)
  Receive Date: 20110913
  Receipt Date: 20110907
  Transmission Date: 20111222
  Serious: Yes (Other)
  Sender: FDA-Public Use
  Company Number: JP-GLAXOSMITHKLINE-B0746068A

PATIENT
  Sex: Female

DRUGS (2)
  1. LAMICTAL [Suspect]
     Indication: BIPOLAR DISORDER
     Dosage: 25MG TWICE PER DAY
     Route: 048
     Dates: start: 20090513, end: 20090730
  2. DEPAKENE [Concomitant]
     Dosage: 200MG PER DAY
     Route: 048

REACTIONS (3)
  - ECZEMA [None]
  - GASTROINTESTINAL HAEMORRHAGE [None]
  - CONJUNCTIVITIS [None]
